FAERS Safety Report 7076507-8 (Version None)
Quarter: 2010Q4

REPORT INFORMATION
  Report Type: 
  Country: None (occurrence: None)
  Receive Date: 20101101
  Receipt Date: 20101025
  Transmission Date: 20110411
  Serious: Yes (Hospitalization, Other)
  Sender: FDA-Public Use
  Company Number: US-ELI_LILLY_AND_COMPANY-US201001003839

PATIENT
  Sex: Male
  Weight: 151.93 kg

DRUGS (9)
  1. BYETTA [Suspect]
     Dosage: 10 UG, 2/D
     Route: 058
     Dates: start: 20070601, end: 20081201
  2. METFORMIN [Concomitant]
     Dosage: 850 MG, 2/D
  3. LISINOPRIL [Concomitant]
     Dosage: UNK, DAILY (1/D)
     Dates: end: 20081201
  4. LORTAB [Concomitant]
     Dosage: 10 MG, AS NEEDED
  5. GLIPIZIDE [Concomitant]
     Dosage: 10 MG, DAILY (1/D)
  6. DIOVAN HCT [Concomitant]
     Dosage: UNK, 2/D
  7. AMLODIPINE [Concomitant]
  8. LANTUS [Concomitant]
  9. LASIX [Concomitant]
     Dosage: 40 MG, 2/D

REACTIONS (2)
  - OFF LABEL USE [None]
  - PANCREATITIS ACUTE [None]
